FAERS Safety Report 14788192 (Version 1)
Quarter: 2018Q2

REPORT INFORMATION
  Report Type: Spontaneous
  Country: FR (occurrence: FR)
  Receive Date: 20180423
  Receipt Date: 20180423
  Transmission Date: 20180711
  Serious: Yes (Other)
  Sender: FDA-Public Use
  Company Number: FR-MERCK KGAA-2046250

PATIENT
  Sex: Female

DRUGS (1)
  1. NOVOTHYROX [Suspect]
     Active Substance: LEVOTHYROXINE SODIUM
     Indication: POST PROCEDURAL HYPOTHYROIDISM

REACTIONS (19)
  - Mental fatigue [None]
  - Tearfulness [None]
  - Ageusia [None]
  - Personal relationship issue [None]
  - Muscle spasms [None]
  - Mood swings [None]
  - Loss of personal independence in daily activities [None]
  - Nausea [None]
  - Migraine [Recovered/Resolved]
  - Abdominal discomfort [None]
  - Weight increased [None]
  - Vomiting [None]
  - Suicidal ideation [None]
  - Alopecia [Recovered/Resolved]
  - Depression [None]
  - Insomnia [Not Recovered/Not Resolved]
  - Fatigue [Not Recovered/Not Resolved]
  - Mood altered [None]
  - Asthenia [None]
